FAERS Safety Report 14366536 (Version 3)
Quarter: 2018Q2

REPORT INFORMATION
  Report Type: Spontaneous
  Country: PT (occurrence: PT)
  Receive Date: 20180109
  Receipt Date: 20180507
  Transmission Date: 20180711
  Serious: Yes (Life-Threatening, Disabling)
  Sender: FDA-Public Use
  Company Number: PT-MYLANLABS-M-EU-2016120481

PATIENT
  Age: 78 Year
  Sex: Female

DRUGS (7)
  1. PENTOXIFYLLINE. [Suspect]
     Active Substance: PENTOXIFYLLINE
     Indication: PERIPHERAL ISCHAEMIA
     Dosage: UNK
  2. SILDENAFIL. [Suspect]
     Active Substance: SILDENAFIL
     Indication: PERIPHERAL ISCHAEMIA
     Dosage: UNK
  3. ENOXAPARIN [Suspect]
     Active Substance: ENOXAPARIN
     Indication: PERIPHERAL ISCHAEMIA
     Dosage: FULL DOSE
  4. BOSENTAN. [Concomitant]
     Active Substance: BOSENTAN
     Indication: PRODUCT USED FOR UNKNOWN INDICATION
     Dosage: UNK
  5. SIMVASTATIN. [Suspect]
     Active Substance: SIMVASTATIN
     Indication: PERIPHERAL ISCHAEMIA
     Dosage: UNK
  6. ACETYLSALICYLIC ACID [Suspect]
     Active Substance: ASPIRIN
     Indication: PERIPHERAL ISCHAEMIA
     Dosage: UNK
  7. NIFEDIPINE. [Concomitant]
     Active Substance: NIFEDIPINE
     Indication: PRODUCT USED FOR UNKNOWN INDICATION
     Dosage: UNK

REACTIONS (3)
  - Off label use [Unknown]
  - Drug ineffective [Unknown]
  - No adverse event [Unknown]
